FAERS Safety Report 10383653 (Version 1)
Quarter: 2014Q1

REPORT INFORMATION
  Report Type: Spontaneous
  Country: US (occurrence: None)
  Receive Date: 20140306
  Receipt Date: 20140306
  Transmission Date: 20141002
  Serious: Yes (Other)
  Sender: FDA-Public Use
  Company Number: 163-21880-13081052

PATIENT
  Age: 77 Year
  Sex: Male
  Weight: 77.1 kg

DRUGS (12)
  1. REVLIMID (LENALIDOMIDE) (25 MILLIGRAM, CAPSULES) [Suspect]
     Indication: PLASMA CELL MYELOMA
     Route: 048
     Dates: start: 20091223
  2. VICODIN [Concomitant]
  3. DEXAMETHASONE [Concomitant]
  4. IMODIUM ADVANCED [Concomitant]
  5. VITAMIN D (ERGOCALCIFEROL) [Concomitant]
  6. PROCHLORPERAZINE MALEATE [Concomitant]
  7. ASPIRIN (ACETYLSALICYLIC ACID) [Concomitant]
  8. LASIX (FUROSEMIDE) [Concomitant]
  9. LEVOTHYROID [Concomitant]
  10. PRILOSEC (OMEPRAZOLE) [Concomitant]
  11. HYDROXYZINE HCL (HYDROXYZINE HYDROCHLORIDE) [Concomitant]
  12. OXYCONTIN (OXYCODONE HYDROCHLORIDE) [Concomitant]

REACTIONS (2)
  - Thrombosis [None]
  - Local swelling [None]
